FAERS Safety Report 24313077 (Version 1)
Quarter: 2024Q3

REPORT INFORMATION
  Report Type: Spontaneous
  Country: US (occurrence: None)
  Receive Date: 20240912
  Receipt Date: 20240912
  Transmission Date: 20241017
  Serious: Yes (Disabling)
  Sender: Public
  Company Number: None

PATIENT
  Age: 50 Year
  Sex: Female
  Weight: 94.95 kg

DRUGS (4)
  1. PREDNISONE [Suspect]
     Active Substance: PREDNISONE
     Indication: Rash
     Dosage: OTHER QUANTITY : 2 TABLET(S);?FREQUENCY : DAILY;?
     Route: 048
  2. ZYRTEC [Concomitant]
     Active Substance: CETIRIZINE HYDROCHLORIDE
  3. FLUOXETINE [Concomitant]
  4. ALEVE [Concomitant]
     Active Substance: NAPROXEN SODIUM

REACTIONS (4)
  - Visual impairment [None]
  - Eye pain [None]
  - Unevaluable event [None]
  - Cataract [None]

NARRATIVE: CASE EVENT DATE: 20240903
